FAERS Safety Report 4734079-4 (Version None)
Quarter: 2005Q3

REPORT INFORMATION
  Report Type: 
  Country: None (occurrence: None)
  Receive Date: 20050729
  Receipt Date: 20050718
  Transmission Date: 20060218
  Serious: Yes (Other)
  Sender: FDA-Public Use
  Company Number: 2005103688

PATIENT
  Age: 53 Year
  Sex: Male

DRUGS (7)
  1. VORICONAZOLE (VORICONAZOLE) [Suspect]
     Indication: FUNGAL INFECTION
     Dosage: 400  MG (200 MG, BID),
  2. CELECOXIB (CELECOXIB) [Concomitant]
  3. TRIAMTERENE AND HYDROCHLOROTHIAZID ^HARRIS^ (HYDROCHLOROTHIAZIDE, TRIA [Concomitant]
  4. DILTIAZEM [Concomitant]
  5. CANDESARTAN (CANDESARTAN) [Concomitant]
  6. GLYBURIDE [Concomitant]
  7. METFORMIN HCL [Concomitant]

REACTIONS (1)
  - PSEUDOPORPHYRIA [None]
